FAERS Safety Report 10498874 (Version 1)
Quarter: 2014Q4

REPORT INFORMATION
  Report Type: Spontaneous
  Country: FR (occurrence: FR)
  Receive Date: 20141006
  Receipt Date: 20141006
  Transmission Date: 20150528
  Serious: Yes (Hospitalization)
  Sender: FDA-Public Use
  Company Number: FR-PFIZER INC-2014270861

PATIENT
  Age: 92 Year
  Sex: Female

DRUGS (6)
  1. DIFFU-K [Concomitant]
     Active Substance: POTASSIUM CHLORIDE
  2. LASILIX [Concomitant]
     Active Substance: FUROSEMIDE
  3. PLAVIX [Suspect]
     Active Substance: CLOPIDOGREL BISULFATE
     Dosage: 75 MG, 1X/DAY
     Route: 048
     Dates: end: 20140117
  4. PROCTOLOG [Concomitant]
     Active Substance: TRIMEBUTINE
  5. AMLOR [Suspect]
     Active Substance: AMLODIPINE BESYLATE
     Dosage: 10 MG, 1X/DAY
     Route: 048
     Dates: end: 20140117
  6. ATARAX [Concomitant]
     Active Substance: HYDROXYZINE\HYDROXYZINE HYDROCHLORIDE

REACTIONS (1)
  - Agranulocytosis [Recovered/Resolved]

NARRATIVE: CASE EVENT DATE: 20140117
